FAERS Safety Report 4656172-7 (Version None)
Quarter: 2005Q2

REPORT INFORMATION
  Report Type: 
  Country: None (occurrence: None)
  Receive Date: 20050509
  Receipt Date: 20050111
  Transmission Date: 20051028
  Serious: No
  Sender: FDA-Public Use
  Company Number: US-GLAXOSMITHKLINE-A0540273A

PATIENT
  Age: 62 Year
  Sex: Female
  Weight: 92.3 kg

DRUGS (3)
  1. AVANDAMET [Suspect]
     Route: 048
  2. METOPROLOL [Concomitant]
  3. ENALAPRIL MALEATE [Concomitant]
     Route: 065

REACTIONS (1)
  - DIARRHOEA [None]
